FAERS Safety Report 6744845-1 (Version None)
Quarter: 2010Q2

REPORT INFORMATION
  Report Type: 
  Country: None (occurrence: None)
  Receive Date: 20100527
  Receipt Date: 20100325
  Transmission Date: 20101027
  Serious: No
  Sender: FDA-Public Use
  Company Number: US-BRISTOL-MYERS SQUIBB COMPANY-15037161

PATIENT
  Age: 7 Decade
  Sex: Male
  Weight: 82 kg

DRUGS (2)
  1. ONGLYZA [Suspect]
     Indication: TYPE 2 DIABETES MELLITUS
  2. JANUVIA [Suspect]
     Indication: TYPE 2 DIABETES MELLITUS

REACTIONS (1)
  - MUSCULOSKELETAL PAIN [None]
